FAERS Safety Report 19939928 (Version 2)
Quarter: 2022Q2

REPORT INFORMATION
  Report Type: Spontaneous
  Country: US (occurrence: None)
  Receive Date: 20211011
  Receipt Date: 20220511
  Transmission Date: 20220721
  Serious: Yes (Hospitalization, Other)
  Sender: FDA-Public Use
  Company Number: US-ROCHE-2929278

PATIENT
  Age: 33 Year
  Sex: Female
  Weight: 96.702 kg

DRUGS (5)
  1. RITUXAN [Suspect]
     Active Substance: RITUXIMAB
     Indication: Relapsing-remitting multiple sclerosis
     Dosage: 20/JAN/2020, 19/JUN/2020, /NOV/2020,.
     Route: 041
  2. ELAVIL [Concomitant]
     Active Substance: AMITRIPTYLINE HYDROCHLORIDE
  3. MAGNESIUM [Concomitant]
     Active Substance: MAGNESIUM
  4. CANNABIDIOL [Concomitant]
     Active Substance: CANNABIDIOL
  5. CLARITIN [Concomitant]
     Active Substance: LORATADINE

REACTIONS (4)
  - COVID-19 [Unknown]
  - Maternal exposure during pregnancy [Unknown]
  - Premature delivery [Unknown]
  - Off label use [Unknown]

NARRATIVE: CASE EVENT DATE: 20210915
